FAERS Safety Report 6505309-3 (Version None)
Quarter: 2009Q4

REPORT INFORMATION
  Report Type: 
  Country: None (occurrence: None)
  Receive Date: 20091218
  Receipt Date: 20091210
  Transmission Date: 20100525
  Serious: Yes (Hospitalization)
  Sender: FDA-Public Use
  Company Number: US-JNJFOC-20091204296

PATIENT
  Sex: Male
  Weight: 60.78 kg

DRUGS (8)
  1. DURAGESIC-100 [Suspect]
     Indication: CEREBRAL DISORDER
     Route: 062
     Dates: start: 20091101
  2. MOTRIN [Suspect]
     Indication: DRUG USE FOR UNKNOWN INDICATION
     Route: 048
  3. UNKNOWN MEDICATION [Concomitant]
     Indication: CARDIAC DISORDER
  4. TOPROL-XL [Concomitant]
     Indication: CARDIAC DISORDER
  5. ASPIRIN [Concomitant]
     Indication: CARDIAC DISORDER
  6. LISINOPRIL [Concomitant]
     Indication: CARDIAC DISORDER
  7. MORPHINE [Concomitant]
     Indication: GROIN PAIN
  8. MORPHINE [Concomitant]
     Indication: ABDOMINAL PAIN UPPER

REACTIONS (2)
  - ARTERIAL HAEMORRHAGE [None]
  - DRUG INEFFECTIVE [None]
